FAERS Safety Report 11680598 (Version 2)
Quarter: 2015Q4

REPORT INFORMATION
  Report Type: Spontaneous
  Country: US (occurrence: US)
  Receive Date: 20151027
  Receipt Date: 20151104
  Transmission Date: 20160304
  Serious: No
  Sender: FDA-Public Use
  Company Number: US-ELI_LILLY_AND_COMPANY-US201008005229

PATIENT
  Age: 63 Year
  Sex: Female

DRUGS (4)
  1. FLU [Concomitant]
     Active Substance: INFLUENZA VIRUS VACCINE
     Indication: INFLUENZA
     Dates: start: 20100908
  2. FORTEO [Suspect]
     Active Substance: TERIPARATIDE
     Indication: OSTEOPOROSIS
     Dosage: UNK, UNKNOWN
     Route: 065
     Dates: start: 200909
  3. FORTEO [Suspect]
     Active Substance: TERIPARATIDE
     Dosage: UNK, UNKNOWN
  4. FORTEO [Suspect]
     Active Substance: TERIPARATIDE
     Dosage: 20 UG, DAILY (1/D)

REACTIONS (23)
  - Abdominal pain upper [Recovering/Resolving]
  - Hypertension [Unknown]
  - Dyspepsia [Recovering/Resolving]
  - Vomiting [Unknown]
  - Retching [Recovering/Resolving]
  - Body temperature increased [Unknown]
  - Constipation [Not Recovered/Not Resolved]
  - Increased appetite [Unknown]
  - Depression [Unknown]
  - Chest discomfort [Unknown]
  - Pain in extremity [Unknown]
  - Weight decreased [Unknown]
  - Intestinal congestion [Recovering/Resolving]
  - Nausea [Recovering/Resolving]
  - Feeling abnormal [Not Recovered/Not Resolved]
  - Gastroenteritis viral [Unknown]
  - Abdominal distension [Not Recovered/Not Resolved]
  - Contusion [Unknown]
  - Aphasia [Unknown]
  - Hypersensitivity [Recovering/Resolving]
  - Headache [Unknown]
  - Memory impairment [Unknown]
  - Amnesia [Unknown]

NARRATIVE: CASE EVENT DATE: 20110309
